FAERS Safety Report 17585202 (Version 2)
Quarter: 2020Q4

REPORT INFORMATION
  Report Type: Report from Study
  Country: IT (occurrence: IT)
  Receive Date: 20200326
  Receipt Date: 20201125
  Transmission Date: 20210113
  Serious: Yes (Other)
  Sender: FDA-Public Use
  Company Number: IT-ACCORD-169320

PATIENT
  Age: 60 Year
  Sex: Male

DRUGS (3)
  1. CARVEDILOL RITIOPHARM [Concomitant]
     Indication: HYPERTENSION
  2. ETOPOSIDE. [Suspect]
     Active Substance: ETOPOSIDE
     Indication: LUNG NEOPLASM
     Route: 042
     Dates: start: 20191023, end: 20191220
  3. OMNIC [Concomitant]
     Active Substance: TAMSULOSIN HYDROCHLORIDE
     Indication: BENIGN PROSTATIC HYPERPLASIA

REACTIONS (7)
  - Feeling cold [Unknown]
  - Leukopenia [Unknown]
  - Pruritus [Unknown]
  - Hot flush [Unknown]
  - Constipation [Unknown]
  - Nausea [Unknown]
  - Asthenia [Unknown]

NARRATIVE: CASE EVENT DATE: 20191120
